FAERS Safety Report 10703616 (Version 2)
Quarter: 2015Q2

REPORT INFORMATION
  Report Type: Spontaneous
  Country: SE (occurrence: SE)
  Receive Date: 20150112
  Receipt Date: 20150505
  Transmission Date: 20150821
  Serious: Yes (Other)
  Sender: FDA-Public Use
  Company Number: SE-JNJFOC-20141219602

PATIENT
  Sex: Female

DRUGS (1)
  1. TRINOVUM [Suspect]
     Active Substance: ETHINYL ESTRADIOL\NORETHINDRONE
     Indication: CONTRACEPTION
     Route: 048

REACTIONS (1)
  - Deep vein thrombosis [Unknown]
